FAERS Safety Report 8290240-6 (Version None)
Quarter: 2012Q2

REPORT INFORMATION
  Report Type: 
  Country: None (occurrence: None)
  Receive Date: 20120417
  Receipt Date: 20120417
  Transmission Date: 20120825
  Serious: Yes (Other)
  Sender: FDA-Public Use
  Company Number: US-JNJFOC-20110607287

PATIENT
  Sex: Female

DRUGS (1)
  1. LEVAQUIN [Suspect]
     Indication: ACUTE SINUSITIS
     Route: 065
     Dates: start: 20090404, end: 20090411

REACTIONS (3)
  - TENDON RUPTURE [None]
  - ROTATOR CUFF SYNDROME [None]
  - TENDONITIS [None]
